FAERS Safety Report 21741619 (Version 2)
Quarter: 2023Q2

REPORT INFORMATION
  Report Type: Report from Study
  Country: US (occurrence: US)
  Receive Date: 20221216
  Receipt Date: 20230517
  Transmission Date: 20230722
  Serious: No
  Sender: FDA-Public Use
  Company Number: US-ABBVIE-4199481

PATIENT
  Age: 66 Year
  Sex: Female

DRUGS (6)
  1. HUMIRA [Suspect]
     Active Substance: ADALIMUMAB
     Indication: Psoriasis
     Route: 058
  2. HUMIRA [Suspect]
     Active Substance: ADALIMUMAB
     Indication: Psoriatic arthropathy
  3. CANNABIDIOL\HERBALS [Concomitant]
     Active Substance: CANNABIDIOL\HERBALS
     Indication: Lyme disease
  4. HERBALS\TURMERIC [Concomitant]
     Active Substance: HERBALS\TURMERIC
     Indication: Arthropathy
     Dosage: FORM STRENGTH: 500 MG
  5. CANNABIDIOL\HERBALS [Concomitant]
     Active Substance: CANNABIDIOL\HERBALS
     Indication: Lyme disease
     Route: 065
  6. Papaya enzyme [Concomitant]
     Indication: Dyspepsia

REACTIONS (10)
  - Weight decreased [Unknown]
  - Peripheral coldness [Recovering/Resolving]
  - Thyroid function test abnormal [Recovering/Resolving]
  - Ear pain [Recovering/Resolving]
  - Pain in extremity [Recovering/Resolving]
  - Muscle spasms [Unknown]
  - Migraine [Unknown]
  - Hypoaesthesia [Unknown]
  - Pain in extremity [Unknown]
  - Pain in extremity [Unknown]

NARRATIVE: CASE EVENT DATE: 20221001
